FAERS Safety Report 6941556-4 (Version None)
Quarter: 2010Q3

REPORT INFORMATION
  Report Type: 
  Country: None (occurrence: None)
  Receive Date: 20100825
  Receipt Date: 20100816
  Transmission Date: 20110219
  Serious: No
  Sender: FDA-Public Use
  Company Number: US-US-EMD SERONO, INC.-7014514

PATIENT
  Sex: Female

DRUGS (7)
  1. REBIF [Suspect]
     Indication: MULTIPLE SCLEROSIS
     Route: 058
     Dates: start: 20100812, end: 20100814
  2. ABILIFY [Concomitant]
     Indication: DEPRESSION
  3. ABILIFY [Concomitant]
     Indication: BIPOLAR DISORDER
  4. LEXAPRO [Concomitant]
     Indication: DEPRESSION
  5. LEXAPRO [Concomitant]
     Indication: BIPOLAR DISORDER
  6. LAMICTAL [Concomitant]
     Indication: DEPRESSION
  7. LAMICTAL [Concomitant]
     Indication: BIPOLAR DISORDER

REACTIONS (2)
  - DEPRESSION [None]
  - SELF-INJURIOUS IDEATION [None]
